FAERS Safety Report 10448404 (Version 1)
Quarter: 2014Q3

REPORT INFORMATION
  Report Type: Spontaneous
  Country: DK (occurrence: DE)
  Receive Date: 20140911
  Receipt Date: 20140911
  Transmission Date: 20150326
  Serious: Yes (Congenital Anomaly, Other)
  Sender: FDA-Public Use
  Company Number: DE-FRI-1000070534

PATIENT
  Age: 0 Year
  Sex: Male
  Weight: 3.8 kg

DRUGS (6)
  1. CEFUROXIM [Concomitant]
     Active Substance: CEFUROXIME
     Route: 064
     Dates: start: 201304, end: 201305
  2. GYNVITAL [Concomitant]
     Dosage: 0.4 MG
     Route: 064
     Dates: end: 201305
  3. ESCITALOPRAM [Suspect]
     Active Substance: ESCITALOPRAM OXALATE
     Dosage: GRADUALLY REDUCED TO 1 MG/DAY
     Route: 064
     Dates: end: 20130806
  4. ESCITALOPRAM [Suspect]
     Active Substance: ESCITALOPRAM OXALATE
     Dosage: 15 MG
     Route: 064
     Dates: start: 20121028
  5. METRONIDAZOL [Concomitant]
     Active Substance: METRONIDAZOLE
     Route: 064
     Dates: start: 201305, end: 201305
  6. NAUSEMA [Concomitant]
     Route: 064
     Dates: start: 201212, end: 201303

REACTIONS (3)
  - Foetal exposure during pregnancy [Not Recovered/Not Resolved]
  - Electrocardiogram QT prolonged [Unknown]
  - Congenital hearing disorder [Not Recovered/Not Resolved]

NARRATIVE: CASE EVENT DATE: 20121028
